FAERS Safety Report 19013022 (Version 2)
Quarter: 2022Q2

REPORT INFORMATION
  Report Type: Spontaneous
  Country: CA (occurrence: CA)
  Receive Date: 20210316
  Receipt Date: 20220524
  Transmission Date: 20220721
  Serious: Yes (Hospitalization, Other)
  Sender: FDA-Public Use
  Company Number: CA-GLAXOSMITHKLINE-CA2021GSK062880

PATIENT
  Sex: Male

DRUGS (2)
  1. AVANDIA [Suspect]
     Active Substance: ROSIGLITAZONE MALEATE
     Indication: Diabetes mellitus
     Dosage: 4 MG, QD
     Route: 048
     Dates: start: 2004, end: 2006
  2. AVANDIA [Suspect]
     Active Substance: ROSIGLITAZONE MALEATE
     Dosage: UNK
     Route: 048
     Dates: start: 20060831, end: 20061031

REACTIONS (7)
  - Myocardial infarction [Unknown]
  - Dyspnoea [Unknown]
  - Stent placement [Unknown]
  - Cardiac disorder [Unknown]
  - Stenosis [Unknown]
  - Coronary artery disease [Unknown]
  - Aortic valve stenosis [Unknown]
